FAERS Safety Report 4843033-3 (Version None)
Quarter: 2005Q4

REPORT INFORMATION
  Report Type: 
  Country: None (occurrence: None)
  Receive Date: 20051201
  Receipt Date: 20051021
  Transmission Date: 20060501
  Serious: Yes (Disabling)
  Sender: FDA-Public Use
  Company Number: US-BRISTOL-MYERS SQUIBB COMPANY-13154059

PATIENT
  Age: 49 Year
  Sex: Female

DRUGS (4)
  1. ABILIFY [Suspect]
     Indication: BIPOLAR DISORDER
     Route: 048
     Dates: start: 20050928
  2. EFFEXOR XR [Concomitant]
     Route: 048
  3. LAMICTAL [Concomitant]
     Route: 048
  4. ZYPREXA [Concomitant]
     Route: 048

REACTIONS (1)
  - CONTUSION [None]
